FAERS Safety Report 6008186-2 (Version None)
Quarter: 2008Q4

REPORT INFORMATION
  Report Type: 
  Country: None (occurrence: None)
  Receive Date: 20081217
  Receipt Date: 20080721
  Transmission Date: 20090506
  Serious: No
  Sender: FDA-Public Use
  Company Number: US-ASTRAZENECA-2008UW15137

PATIENT
  Age: 58 Year
  Sex: Female
  Weight: 63.5 kg

DRUGS (7)
  1. CRESTOR [Suspect]
     Route: 048
     Dates: start: 20080401
  2. METHOTREXATE [Concomitant]
  3. PLAVIX [Concomitant]
  4. ISOSORBIDE [Concomitant]
  5. ALTACE [Concomitant]
  6. METOPROLOL TARTRATE [Concomitant]
  7. PEPCID [Concomitant]

REACTIONS (2)
  - NAUSEA [None]
  - VOMITING [None]
